FAERS Safety Report 8570992-8 (Version None)
Quarter: 2012Q3

REPORT INFORMATION
  Report Type: 
  Country: None (occurrence: None)
  Receive Date: 20120806
  Receipt Date: 20120731
  Transmission Date: 20120928
  Serious: No
  Sender: FDA-Public Use
  Company Number: US-BIOGENIDEC-2012BI028566

PATIENT
  Age: 42 Year
  Sex: Female

DRUGS (2)
  1. AVONEX [Suspect]
     Indication: MULTIPLE SCLEROSIS
     Route: 030
     Dates: start: 19971201, end: 20001201
  2. AVONEX [Suspect]
     Route: 030
     Dates: start: 20110311

REACTIONS (6)
  - FATIGUE [None]
  - ARTHRITIS [None]
  - ASTHENIA [None]
  - MULTIPLE SCLEROSIS [None]
  - MOBILITY DECREASED [None]
  - LIVER DISORDER [None]
